FAERS Safety Report 19872242 (Version 2)
Quarter: 2021Q4

REPORT INFORMATION
  Report Type: Report from Study
  Country: US (occurrence: US)
  Receive Date: 20210923
  Receipt Date: 20211210
  Transmission Date: 20220303
  Serious: Yes (Other)
  Sender: FDA-Public Use
  Company Number: US-GLAXOSMITHKLINE-US2021GSK200684

PATIENT
  Age: 16 Year
  Sex: Male

DRUGS (1)
  1. LAMOTRIGINE [Suspect]
     Active Substance: LAMOTRIGINE
     Indication: Product used for unknown indication
     Dosage: 3.5 G
     Route: 048

REACTIONS (6)
  - Drug level increased [Recovered/Resolved]
  - Cardiotoxicity [Recovered/Resolved]
  - Bundle branch block right [Recovered/Resolved]
  - Defect conduction intraventricular [Recovered/Resolved]
  - Coma [Unknown]
  - Intentional overdose [Unknown]
